FAERS Safety Report 23335621 (Version 1)
Quarter: 2023Q4

REPORT INFORMATION
  Report Type: Spontaneous
  Country: IN (occurrence: IN)
  Receive Date: 20231225
  Receipt Date: 20231225
  Transmission Date: 20240110
  Serious: Yes (Other)
  Sender: FDA-Public Use
  Company Number: IN-BAYER-2023A182353

PATIENT
  Age: 83 Year
  Sex: Female

DRUGS (2)
  1. EYLEA [Suspect]
     Active Substance: AFLIBERCEPT
     Indication: Retinal degeneration
     Dosage: UNK, SOLUTION FOR INJECTION, 40 MG/ML
     Dates: start: 20231015
  2. ANTI DIABETIC [Concomitant]
     Indication: Diabetes mellitus
     Dosage: UNK

REACTIONS (1)
  - Product use in unapproved indication [Recovering/Resolving]
